FAERS Safety Report 21520992 (Version 2)
Quarter: 2022Q4

REPORT INFORMATION
  Report Type: Spontaneous
  Country: JP (occurrence: JP)
  Receive Date: 20221028
  Receipt Date: 20221212
  Transmission Date: 20230113
  Serious: Yes (Life-Threatening, Other)
  Sender: FDA-Public Use
  Company Number: JP-JAZZ-2022-JP-033702

PATIENT
  Age: 40 Year
  Sex: Female
  Weight: 34.8 kg

DRUGS (1)
  1. DEFITELIO [Suspect]
     Active Substance: DEFIBROTIDE SODIUM
     Indication: Venoocclusive liver disease
     Dosage: 25 MILLIGRAM/KILOGRAM, QD
     Dates: start: 20191120, end: 20191124

REACTIONS (1)
  - Posterior reversible encephalopathy syndrome [Recovering/Resolving]

NARRATIVE: CASE EVENT DATE: 20191125
